FAERS Safety Report 8393023-1 (Version None)
Quarter: 2012Q2

REPORT INFORMATION
  Report Type: 
  Country: None (occurrence: None)
  Receive Date: 20120529
  Receipt Date: 20120304
  Transmission Date: 20120825
  Serious: No
  Sender: FDA-Public Use
  Company Number: US-ABBOTT-12P-163-0912685-00

PATIENT
  Sex: Male

DRUGS (1)
  1. ANDROGEL [Suspect]
     Indication: BLOOD TESTOSTERONE DECREASED
     Route: 061
     Dates: end: 20120304

REACTIONS (6)
  - FATIGUE [None]
  - ERYTHEMA [None]
  - PRURITUS [None]
  - RASH PAPULAR [None]
  - RASH [None]
  - GYNAECOMASTIA [None]
